FAERS Safety Report 25540290 (Version 1)
Quarter: 2025Q3

REPORT INFORMATION
  Report Type: Spontaneous
  Country: US (occurrence: US)
  Receive Date: 20250710
  Receipt Date: 20250710
  Transmission Date: 20251021
  Serious: No
  Sender: SANOFI AVENTIS
  Company Number: US-SA-2025SA194116

PATIENT
  Sex: Male

DRUGS (1)
  1. DUPIXENT [Suspect]
     Active Substance: DUPILUMAB
     Indication: Cardiac failure congestive
     Dosage: 300 MG, QOW
     Route: 058

REACTIONS (2)
  - Blood pressure decreased [Unknown]
  - Product use in unapproved indication [Unknown]
